FAERS Safety Report 20779388 (Version 1)
Quarter: 2022Q2

REPORT INFORMATION
  Report Type: Spontaneous
  Country: CA (occurrence: None)
  Receive Date: 20220503
  Receipt Date: 20220503
  Transmission Date: 20220721
  Serious: Yes (Other)
  Sender: FDA-Public Use
  Company Number: 2022A170179

PATIENT
  Age: 38 Year
  Sex: Female

DRUGS (10)
  1. OMEPRAZOLE [Suspect]
     Active Substance: OMEPRAZOLE
     Route: 048
  2. COLCHICINE [Suspect]
     Active Substance: COLCHICINE
     Indication: Product used for unknown indication
     Route: 065
  3. INDOMETHACIN [Suspect]
     Active Substance: INDOMETHACIN
     Indication: Product used for unknown indication
     Route: 048
  4. OTEZLA [Suspect]
     Active Substance: APREMILAST
     Indication: Product used for unknown indication
     Route: 048
  5. ADALIMUMAB [Concomitant]
     Active Substance: ADALIMUMAB
     Indication: Product used for unknown indication
     Route: 065
  6. CELEBREX [Concomitant]
     Active Substance: CELECOXIB
     Indication: Product used for unknown indication
     Route: 048
  7. CIMZIA [Concomitant]
     Active Substance: CERTOLIZUMAB PEGOL
     Route: 058
  8. ESOMEPRAZOLE MAGNESIUM\NAPROXEN [Concomitant]
     Active Substance: ESOMEPRAZOLE MAGNESIUM\NAPROXEN
     Indication: Product used for unknown indication
     Dosage: UNKNOWN
     Route: 048
  9. PREDNISONE [Concomitant]
     Active Substance: PREDNISONE
     Indication: Mouth ulceration
     Route: 048
  10. CERTOLIZUMAB PEGOL [Concomitant]
     Active Substance: CERTOLIZUMAB PEGOL
     Route: 065

REACTIONS (15)
  - Ankylosing spondylitis [Not Recovered/Not Resolved]
  - Arthralgia [Not Recovered/Not Resolved]
  - Back pain [Not Recovered/Not Resolved]
  - Cartilage injury [Not Recovered/Not Resolved]
  - Contusion [Not Recovered/Not Resolved]
  - Discomfort [Not Recovered/Not Resolved]
  - Fatigue [Not Recovered/Not Resolved]
  - Grip strength decreased [Not Recovered/Not Resolved]
  - Inflammation [Not Recovered/Not Resolved]
  - Joint swelling [Not Recovered/Not Resolved]
  - Musculoskeletal stiffness [Not Recovered/Not Resolved]
  - Neck pain [Not Recovered/Not Resolved]
  - Pain in extremity [Not Recovered/Not Resolved]
  - Paraesthesia [Not Recovered/Not Resolved]
  - Drug ineffective [Not Recovered/Not Resolved]
